FAERS Safety Report 11816639 (Version 1)
Quarter: 2015Q4

REPORT INFORMATION
  Report Type: Spontaneous
  Country: US (occurrence: US)
  Receive Date: 20151210
  Receipt Date: 20151210
  Transmission Date: 20160305
  Serious: No
  Sender: FDA-Public Use
  Company Number: US-JNJFOC-20151023717

PATIENT
  Sex: Female

DRUGS (1)
  1. INVOKANA [Suspect]
     Active Substance: CANAGLIFLOZIN
     Indication: DIABETES MELLITUS
     Dosage: STRENGTH=300 MG
     Route: 048
     Dates: start: 201505

REACTIONS (2)
  - Inappropriate schedule of drug administration [Unknown]
  - Urine output increased [Not Recovered/Not Resolved]
